FAERS Safety Report 6975210-X (Version None)
Quarter: 2010Q3

REPORT INFORMATION
  Report Type: 
  Country: None (occurrence: None)
  Receive Date: 20100910
  Receipt Date: 20090219
  Transmission Date: 20110219
  Serious: No
  Sender: FDA-Public Use
  Company Number: US-WYE-H08313809

PATIENT
  Age: 24 Year
  Sex: Female

DRUGS (1)
  1. PRISTIQ [Suspect]
     Route: 048
     Dates: start: 20081201, end: 20081201

REACTIONS (3)
  - EPISTAXIS [None]
  - SOMNAMBULISM [None]
  - URINARY RETENTION [None]
